FAERS Safety Report 6296694-9 (Version None)
Quarter: 2009Q3

REPORT INFORMATION
  Report Type: 
  Country: None (occurrence: None)
  Receive Date: 20090804
  Receipt Date: 20090727
  Transmission Date: 20100115
  Serious: Yes (Other)
  Sender: FDA-Public Use
  Company Number: US-ELI_LILLY_AND_COMPANY-US200906006708

PATIENT
  Sex: Female

DRUGS (6)
  1. HUMULIN 70/30 [Suspect]
     Dosage: 22 U, EACH MORNING
     Dates: start: 20070101
  2. HUMULIN 70/30 [Suspect]
     Dosage: 14 U, EACH EVENING
     Dates: start: 20070101
  3. HUMULIN 70/30 [Suspect]
     Dosage: 14 U, EACH EVENING
     Dates: start: 20070101
  4. HUMULIN 70/30 [Suspect]
     Dosage: 22 U, EACH MORNING
     Dates: start: 20070101
  5. JANUVIA [Concomitant]
     Dosage: 100 MG, UNK
  6. JANUVIA [Concomitant]
     Dosage: 75 MG, UNK

REACTIONS (1)
  - NO ADVERSE EVENT [None]
